FAERS Safety Report 10875330 (Version 2)
Quarter: 2015Q2

REPORT INFORMATION
  Report Type: Spontaneous
  Country: US (occurrence: US)
  Receive Date: 20150227
  Receipt Date: 20150610
  Transmission Date: 20150821
  Serious: Yes (Hospitalization, Other)
  Sender: FDA-Public Use
  Company Number: US-ELI_LILLY_AND_COMPANY-US201502009176

PATIENT
  Age: 33 Year
  Sex: Female

DRUGS (13)
  1. AMPICILLIN [Concomitant]
     Active Substance: AMPICILLIN
  2. BIAXIN [Concomitant]
     Active Substance: CLARITHROMYCIN
     Route: 064
  3. PHENERGAN [Concomitant]
     Active Substance: PROMETHAZINE HYDROCHLORIDE
  4. PRENAT                             /00023601/ [Concomitant]
     Route: 064
  5. FERROUS SULFATE [Concomitant]
     Active Substance: FERROUS SULFATE\FERROUS SULFATE, DRIED
     Route: 064
  6. EFFEXOR [Concomitant]
     Active Substance: VENLAFAXINE HYDROCHLORIDE
     Dosage: 75 MG, BID
  7. PENICILLIN                         /00000901/ [Concomitant]
     Active Substance: PENICILLIN
     Route: 064
  8. ERYTHROMYCIN. [Concomitant]
     Active Substance: ERYTHROMYCIN
     Route: 064
  9. PROZAC [Suspect]
     Active Substance: FLUOXETINE HYDROCHLORIDE
     Indication: DEPRESSION
     Dosage: 20 MG, QD
     Dates: start: 20010806
  10. AMBIEN [Concomitant]
     Active Substance: ZOLPIDEM TARTRATE
  11. BETAMETHASONE [Concomitant]
     Active Substance: BETAMETHASONE
  12. AMOXICILLIN. [Concomitant]
     Active Substance: AMOXICILLIN
  13. LORAZEPAM. [Concomitant]
     Active Substance: LORAZEPAM
     Route: 064

REACTIONS (4)
  - Premature rupture of membranes [Recovered/Resolved]
  - Prolonged rupture of membranes [Recovered/Resolved]
  - Exposure during pregnancy [Unknown]
  - Foetal malposition [Recovered/Resolved]

NARRATIVE: CASE EVENT DATE: 20010806
